FAERS Safety Report 16472912 (Version 1)
Quarter: 2019Q2

REPORT INFORMATION
  Report Type: Spontaneous
  Country: US (occurrence: US)
  Receive Date: 20190514
  Receipt Date: 20190514
  Transmission Date: 20190711
  Serious: Yes (Other)
  Sender: FDA-Public Use
  Company Number: None

PATIENT
  Age: 47 Year
  Sex: Female
  Weight: 80.74 kg

DRUGS (4)
  1. DEFINITY [Suspect]
     Active Substance: PERFLUTREN
     Indication: ECHOCARDIOGRAM
     Dosage: ?          QUANTITY:4 ML MILLILITRE(S);?
     Route: 042
     Dates: start: 20190430, end: 20190430
  2. MULTI VITAMIN [Concomitant]
     Active Substance: VITAMINS
  3. BIOTIN [Concomitant]
     Active Substance: BIOTIN
  4. GINGKO [Concomitant]
     Active Substance: GINKGO

REACTIONS (5)
  - Gait inability [None]
  - Hypoaesthesia [None]
  - Discomfort [None]
  - Pain [None]
  - Muscular weakness [None]

NARRATIVE: CASE EVENT DATE: 20190430
